FAERS Safety Report 17576313 (Version 1)
Quarter: 2020Q1

REPORT INFORMATION
  Report Type: Spontaneous
  Country: US (occurrence: US)
  Receive Date: 20200318
  Receipt Date: 20200318
  Transmission Date: 20200409
  Serious: Yes (Hospitalization)
  Sender: FDA-Public Use
  Company Number: None

PATIENT
  Age: 40 Hour
  Sex: Female

DRUGS (2)
  1. TEMOZOLOMIDE 5MG [Suspect]
     Active Substance: TEMOZOLOMIDE
     Indication: BRAIN NEOPLASM MALIGNANT
     Route: 048
     Dates: start: 20200212
  2. TEMOZOLOMIDE 140 MG [Suspect]
     Active Substance: TEMOZOLOMIDE
     Indication: BRAIN NEOPLASM MALIGNANT
     Route: 048
     Dates: start: 20200212

REACTIONS (2)
  - Malaise [None]
  - Therapy cessation [None]

NARRATIVE: CASE EVENT DATE: 20200316
